FAERS Safety Report 16530245 (Version 1)
Quarter: 2020Q3

REPORT INFORMATION
  Report Type: Spontaneous
  Country: GB (occurrence: GB)
  Receive Date: 20190704
  Receipt Date: 20190704
  Transmission Date: 20201105
  Serious: Yes (Other)
  Sender: FDA-Public Use
  Company Number: GB-DRREDDYS-GER/UKI/19/0111431

PATIENT
  Age: 77 Year
  Sex: Male
  Weight: 71.66 kg

DRUGS (12)
  1. ACCORD?UK LEVOTHYROXINE [Suspect]
     Active Substance: LEVOTHYROXINE SODIUM ANHYDROUS
     Indication: HYPOTHYROIDISM
  2. CANDESARTAN. [Suspect]
     Active Substance: CANDESARTAN
     Indication: PRODUCT USED FOR UNKNOWN INDICATION
     Route: 048
     Dates: start: 2005
  3. WARFARIN [Suspect]
     Active Substance: WARFARIN
     Indication: ATRIAL FIBRILLATION
     Dosage: 3 MG OR 4 MG DAILY
     Route: 048
     Dates: start: 2010
  4. GLYCERYL TRINITRATE [Suspect]
     Active Substance: NITROGLYCERIN
     Indication: ANGINA PECTORIS
     Route: 055
     Dates: start: 201904
  5. VENTOLIN [Suspect]
     Active Substance: ALBUTEROL SULFATE
     Indication: CHRONIC OBSTRUCTIVE PULMONARY DISEASE
     Route: 051
     Dates: start: 2003
  6. BETAHISTINE [Suspect]
     Active Substance: BETAHISTINE
     Indication: EAR DISORDER
     Route: 048
     Dates: start: 2006
  7. ADCAL?D3 [Suspect]
     Active Substance: CALCIUM CARBONATE\CHOLECALCIFEROL
     Indication: PRODUCT USED FOR UNKNOWN INDICATION
     Route: 048
     Dates: start: 20170107
  8. SPIRIVA [Suspect]
     Active Substance: TIOTROPIUM BROMIDE MONOHYDRATE
     Indication: CHRONIC OBSTRUCTIVE PULMONARY DISEASE
     Route: 055
     Dates: start: 2008
  9. IBANDRONIC ACID. [Suspect]
     Active Substance: IBANDRONIC ACID
     Indication: PRODUCT USED FOR UNKNOWN INDICATION
     Route: 048
     Dates: start: 20170107
  10. MERCURY PHARMS LEVOTHYROXINE [Suspect]
     Active Substance: LEVOTHYROXINE SODIUM ANHYDROUS
     Indication: HYPOTHYROIDISM
     Dosage: 25 MCG AND 50 MCG DAILY
     Route: 048
     Dates: start: 2009
  11. OMEPRAZOLE. [Suspect]
     Active Substance: OMEPRAZOLE
     Indication: GASTRIC ULCER
     Route: 048
     Dates: start: 200510
  12. ATIMOS MODULITE [Suspect]
     Active Substance: FORMOTEROL FUMARATE
     Indication: CHRONIC OBSTRUCTIVE PULMONARY DISEASE
     Route: 055
     Dates: start: 201809

REACTIONS (2)
  - Haematochezia [Unknown]
  - Frequent bowel movements [Unknown]
